FAERS Safety Report 9948311 (Version 1)
Quarter: 2014Q1

REPORT INFORMATION
  Report Type: Report from Study
  Country: US (occurrence: US)
  Receive Date: 20140303
  Receipt Date: 20140303
  Transmission Date: 20141002
  Serious: Yes (Hospitalization)
  Sender: FDA-Public Use
  Company Number: US-ABBVIE-13P-163-1061294-00

PATIENT
  Age: 54 Year
  Sex: Male
  Weight: 108.05 kg

DRUGS (6)
  1. HUMIRA [Suspect]
     Indication: PSORIASIS
     Route: 058
     Dates: start: 201211, end: 201211
  2. HUMIRA [Suspect]
     Indication: PSORIATIC ARTHROPATHY
     Route: 058
     Dates: start: 201211, end: 201302
  3. OXYCODONE [Concomitant]
     Indication: PSORIATIC ARTHROPATHY
  4. METHADONE [Concomitant]
     Indication: PSORIATIC ARTHROPATHY
  5. ZOLOFT [Concomitant]
     Indication: DEPRESSION
  6. BACLOFEN [Concomitant]
     Indication: MUSCLE SPASMS

REACTIONS (7)
  - Staphylococcal infection [Recovered/Resolved]
  - Bacteraemia [Recovered/Resolved]
  - Scratch [Recovered/Resolved]
  - Laceration [Recovered/Resolved]
  - Haemorrhage [Recovered/Resolved]
  - Pain in extremity [Not Recovered/Not Resolved]
  - Gait disturbance [Recovered/Resolved]
